FAERS Safety Report 16966276 (Version 3)
Quarter: 2020Q1

REPORT INFORMATION
  Report Type: Spontaneous
  Country: US (occurrence: US)
  Receive Date: 20191028
  Receipt Date: 20200106
  Transmission Date: 20200409
  Serious: No
  Sender: FDA-Public Use
  Company Number: US-PFIZER INC-2019465048

PATIENT
  Age: 80 Year
  Sex: Female

DRUGS (4)
  1. ADVIL LIQUI-GELS [Suspect]
     Active Substance: IBUPROFEN
     Indication: ARTHRITIS
  2. ADVIL LIQUI-GELS [Suspect]
     Active Substance: IBUPROFEN
     Indication: PAIN
     Dosage: 200 MG, UNK
  3. ADVIL LIQUI-GELS [Suspect]
     Active Substance: IBUPROFEN
     Indication: HEADACHE
  4. AMOXICILLIN. [Concomitant]
     Active Substance: AMOXICILLIN
     Indication: SINUS DISORDER
     Dosage: UNK, EVERY TUESDAY, WEDNESDAY, AND THURSDAY

REACTIONS (4)
  - Pruritus [Unknown]
  - Dry skin [Unknown]
  - Reaction to excipient [Unknown]
  - Rash [Unknown]
